FAERS Safety Report 8214974-4 (Version None)
Quarter: 2012Q1

REPORT INFORMATION
  Report Type: 
  Country: None (occurrence: None)
  Receive Date: 20120229
  Receipt Date: 20110608
  Transmission Date: 20120608
  Serious: Yes (Hospitalization)
  Sender: FDA-Public Use
  Company Number: PHHY2011US50840

PATIENT
  Age: 58 Year
  Sex: Male
  Weight: 98 kg

DRUGS (2)
  1. TACROLIMUS [Concomitant]
  2. NEORAL [Suspect]
     Indication: PROPHYLAXIS AGAINST TRANSPLANT REJECTION

REACTIONS (1)
  - PYREXIA [None]
